FAERS Safety Report 6186450-4 (Version None)
Quarter: 2009Q2

REPORT INFORMATION
  Report Type: 
  Country: None (occurrence: None)
  Receive Date: 20090511
  Receipt Date: 20090501
  Transmission Date: 20091009
  Serious: Yes (Hospitalization, Other)
  Sender: FDA-Public Use
  Company Number: US-AMGEN-QUU345477

PATIENT
  Sex: Female

DRUGS (2)
  1. ENBREL [Suspect]
     Indication: RHEUMATOID ARTHRITIS
     Route: 058
  2. REMICADE [Concomitant]

REACTIONS (12)
  - ASTHENIA [None]
  - FATIGUE [None]
  - HIP SWELLING [None]
  - INFLUENZA LIKE ILLNESS [None]
  - INJECTION SITE IRRITATION [None]
  - JOINT DISLOCATION [None]
  - JOINT DISLOCATION REDUCTION [None]
  - OSTEOARTHRITIS [None]
  - PAIN [None]
  - ROTATOR CUFF SYNDROME [None]
  - SYNOVECTOMY [None]
  - VIRAL MYOCARDITIS [None]
